FAERS Safety Report 4294853-8 (Version None)
Quarter: 2004Q1

REPORT INFORMATION
  Report Type: 
  Country: None (occurrence: None)
  Receive Date: 20040216
  Receipt Date: 20030128
  Transmission Date: 20041129
  Serious: No
  Sender: FDA-Public Use
  Company Number: US-GLAXOSMITHKLINE-A0394272A

PATIENT
  Sex: Male

DRUGS (2)
  1. LAMICTAL [Suspect]
     Route: 048
  2. LAMISIL [Suspect]
     Indication: FUNGAL INFECTION
     Route: 048

REACTIONS (4)
  - HEADACHE [None]
  - MEDICATION ERROR [None]
  - NECK PAIN [None]
  - RASH [None]
